FAERS Safety Report 5289708-6 (Version None)
Quarter: 2007Q2

REPORT INFORMATION
  Report Type: 
  Country: None (occurrence: None)
  Receive Date: 20070406
  Receipt Date: 20070402
  Transmission Date: 20071010
  Serious: Yes (Other)
  Sender: FDA-Public Use
  Company Number: US-AMGEN-US214890

PATIENT
  Sex: Male

DRUGS (19)
  1. PANITUMUMAB [Suspect]
     Indication: COLORECTAL CANCER
     Route: 042
     Dates: start: 20060928, end: 20061120
  2. AVASTIN [Suspect]
     Route: 042
  3. IRINOTECAN HCL [Concomitant]
     Route: 042
  4. FLUOROURACIL [Concomitant]
     Route: 042
  5. FOLINIC ACID [Concomitant]
     Route: 042
  6. VITAMIN A [Concomitant]
     Route: 048
     Dates: start: 19960101
  7. VITAMIN E [Concomitant]
     Route: 048
     Dates: start: 19960101
  8. ACIDOPHILUS [Concomitant]
     Route: 048
     Dates: start: 19960101
  9. TYLENOL [Concomitant]
     Route: 048
     Dates: start: 20061201
  10. NASAL SALINE [Concomitant]
     Route: 045
     Dates: start: 20070109
  11. GARLIC [Concomitant]
     Route: 048
     Dates: start: 19960101
  12. VITAMIN B COMPLEX CAP [Concomitant]
     Route: 048
     Dates: start: 19960101
  13. ASCORBIC ACID [Concomitant]
     Route: 048
     Dates: start: 19960101
  14. CALCIUM [Concomitant]
     Route: 048
     Dates: start: 19960101
  15. UNSPECIFIED HERBAL PRODUCT [Concomitant]
  16. DECADRON [Concomitant]
     Route: 042
     Dates: start: 20060928
  17. ZOFRAN [Concomitant]
     Route: 042
     Dates: start: 20060928
  18. ATROPINE [Concomitant]
     Route: 058
     Dates: start: 20060928
  19. COMPAZINE [Concomitant]
     Route: 048
     Dates: start: 20060928

REACTIONS (1)
  - PULMONARY EMBOLISM [None]
